FAERS Safety Report 5854032-7 (Version None)
Quarter: 2008Q3

REPORT INFORMATION
  Report Type: 
  Country: None (occurrence: None)
  Receive Date: 20080822
  Receipt Date: 20080821
  Transmission Date: 20090109
  Serious: Yes (Hospitalization)
  Sender: FDA-Public Use
  Company Number: PHHO2002IT03824

PATIENT
  Sex: Female
  Weight: 71 kg

DRUGS (2)
  1. DIOVAN T30230+CAPS [Suspect]
     Indication: SYSTOLIC HYPERTENSION
     Dosage: 80 MG, QD
     Dates: start: 20011212, end: 20020512
  2. EUTIROX [Concomitant]
     Indication: HYPOTHYROIDISM
     Dosage: LEVEL 1
     Dates: start: 19900101

REACTIONS (1)
  - ANGINA PECTORIS [None]
